FAERS Safety Report 8832742 (Version 1)
Quarter: 2012Q4

REPORT INFORMATION
  Report Type: Spontaneous
  Country: US (occurrence: None)
  Receive Date: 20121009
  Receipt Date: 20121009
  Transmission Date: 20130627
  Serious: Yes (Hospitalization)
  Sender: FDA-Public Use
  Company Number: None

PATIENT
  Age: 64 Year
  Sex: Male
  Weight: 77.2 kg

DRUGS (13)
  1. OFATUMUMAB [Suspect]
     Indication: CHRONIC LYMPHOCYTIC LEUKEMIA
     Dosage: 1000mg, q28d, IV
     Route: 042
     Dates: start: 20110612
  2. CAMPATH [Suspect]
     Indication: CHRONIC LYMPHOCYTIC LEUKEMIA
     Dosage: 30mg, q3e per wk, sc
     Route: 058
     Dates: start: 20121002
  3. ACYCLOVIR [Concomitant]
  4. ALLOPURINOL [Concomitant]
  5. CIPROFLOXACIN [Concomitant]
  6. COLACE (DOCUSATE SODIUM) [Concomitant]
  7. FLAGYL (METRONIDAZOLE) [Concomitant]
  8. LIDOCAINE [Concomitant]
  9. MAGNESIUM OXIDE [Concomitant]
  10. MEPRON SUSPENSION (ATOVAGUONE SUSPENSION) [Concomitant]
  11. PANTOPRAZOLE [Concomitant]
  12. TRAZODONE [Concomitant]
  13. VORICONAZOLE [Concomitant]

REACTIONS (1)
  - Pyrexia [None]
